FAERS Safety Report 17597391 (Version 1)
Quarter: 2020Q1

REPORT INFORMATION
  Report Type: Spontaneous
  Country: CA (occurrence: CA)
  Receive Date: 20200330
  Receipt Date: 20200330
  Transmission Date: 20200409
  Serious: Yes (Other)
  Sender: FDA-Public Use
  Company Number: CA-TEVA-2020-CA-1215001

PATIENT
  Age: 67 Year
  Sex: Female

DRUGS (8)
  1. DICLOFENAC [Concomitant]
     Active Substance: DICLOFENAC
  2. RATIO-EMTEC-30 [Concomitant]
     Active Substance: ACETAMINOPHEN\CODEINE PHOSPHATE
  3. RABEPRAZOLE [Concomitant]
     Active Substance: RABEPRAZOLE
  4. CODEINE CONTIN [Concomitant]
     Active Substance: CODEINE SULFATE
  5. ZOPICLONE [Concomitant]
     Active Substance: ZOPICLONE
  6. FENOFIBRATE. [Concomitant]
     Active Substance: FENOFIBRATE
  7. BISOPROLOL [Concomitant]
     Active Substance: BISOPROLOL
  8. NITROFURANTOIN. [Suspect]
     Active Substance: NITROFURANTOIN
     Indication: PROPHYLAXIS URINARY TRACT INFECTION
     Dosage: 100 MILLIGRAM DAILY;
     Route: 048

REACTIONS (2)
  - Neuropathy peripheral [Unknown]
  - Trigeminal neuralgia [Unknown]
